FAERS Safety Report 18744944 (Version 1)
Quarter: 2021Q1

REPORT INFORMATION
  Report Type: Report from Study
  Country: BR (occurrence: BR)
  Receive Date: 20210115
  Receipt Date: 20210115
  Transmission Date: 20210419
  Serious: Yes (Hospitalization, Other)
  Sender: FDA-Public Use
  Company Number: NVSC2021BR004017

PATIENT
  Age: 27 Year
  Sex: Female

DRUGS (1)
  1. TASIGNA [Suspect]
     Active Substance: NILOTINIB
     Indication: CHRONIC MYELOID LEUKAEMIA
     Dosage: UNK
     Route: 065
     Dates: start: 20201027

REACTIONS (8)
  - Syncope [Unknown]
  - Anaemia [Unknown]
  - Transformation to acute myeloid leukaemia [Not Recovered/Not Resolved]
  - Arthralgia [Unknown]
  - COVID-19 [Unknown]
  - Asthenia [Unknown]
  - Platelet count decreased [Unknown]
  - Immunosuppression [Unknown]

NARRATIVE: CASE EVENT DATE: 202012
